FAERS Safety Report 6827530-7 (Version None)
Quarter: 2010Q3

REPORT INFORMATION
  Report Type: 
  Country: None (occurrence: None)
  Receive Date: 20100709
  Receipt Date: 20070118
  Transmission Date: 20110219
  Serious: No
  Sender: FDA-Public Use
  Company Number: US-PFIZER INC-2007005643

PATIENT
  Sex: Male
  Weight: 83.46 kg

DRUGS (1)
  1. CHANTIX [Suspect]
     Dates: start: 20070103

REACTIONS (2)
  - INCORRECT DOSE ADMINISTERED [None]
  - NO ADVERSE EVENT [None]
